FAERS Safety Report 6075607-9 (Version None)
Quarter: 2009Q1

REPORT INFORMATION
  Report Type: 
  Country: None (occurrence: None)
  Receive Date: 20090210
  Receipt Date: 20090210
  Transmission Date: 20090719
  Serious: Yes (Hospitalization)
  Sender: FDA-Public Use
  Company Number: None

PATIENT
  Sex: Female
  Weight: 77.27 kg

DRUGS (1)
  1. TAXOL [Suspect]
     Dosage: 324 MG
     Dates: end: 20090204

REACTIONS (2)
  - DRUG HYPERSENSITIVITY [None]
  - HYPOTENSION [None]
